FAERS Safety Report 4387693-2 (Version None)
Quarter: 2004Q2

REPORT INFORMATION
  Report Type: 
  Country: None (occurrence: None)
  Receive Date: 20040630
  Receipt Date: 20040422
  Transmission Date: 20050107
  Serious: No
  Sender: FDA-Public Use
  Company Number: US-GLAXOSMITHKLINE-A0508075A

PATIENT
  Sex: Male

DRUGS (6)
  1. ADVAIR HFA [Suspect]
     Route: 055
  2. BLOOD PRESSURE MED [Concomitant]
  3. CHOLESTEROL REDUCING AGENT [Concomitant]
  4. B12 [Concomitant]
  5. SINGULAIR [Concomitant]
  6. ALBUTEROL [Concomitant]

REACTIONS (1)
  - MUSCLE CRAMP [None]
